FAERS Safety Report 7368693-7 (Version None)
Quarter: 2011Q1

REPORT INFORMATION
  Report Type: 
  Country: None (occurrence: None)
  Receive Date: 20110323
  Receipt Date: 20110310
  Transmission Date: 20110831
  Serious: Yes (Life-Threatening, Hospitalization)
  Sender: FDA-Public Use
  Company Number: GB-CELGENEUS-167-C5013-10111298

PATIENT
  Sex: Female

DRUGS (21)
  1. BUTRANS [Concomitant]
     Dosage: 5 MCG/HR
     Route: 062
     Dates: start: 20101108
  2. BUTRANS [Concomitant]
     Dosage: 5 MCG/H
     Route: 062
     Dates: start: 20101105, end: 20101106
  3. PAMIDRONATE DISODIUM [Concomitant]
     Indication: BONE PAIN
     Route: 051
  4. BUTRANS [Concomitant]
     Dosage: 5 MCG/H
     Route: 062
     Dates: end: 20101103
  5. PAMIDRONATE DISODIUM [Concomitant]
     Dosage: 30 MILLIGRAM
     Route: 051
     Dates: start: 20091203
  6. DOCUSATE SODIUM [Concomitant]
     Indication: CONSTIPATION
     Route: 048
     Dates: start: 20101108
  7. TRAMADOL HYDROCHLORIDE [Concomitant]
     Indication: BACK PAIN
     Dosage: 50 MILLIGRAM
     Route: 048
     Dates: start: 20100208, end: 20101101
  8. ALLOPURINOL [Concomitant]
     Indication: PROPHYLAXIS
     Dosage: 300 MILLIGRAM
     Route: 048
     Dates: start: 20101101
  9. LANSOPRAZOLE [Concomitant]
     Dosage: 30 MILLIGRAM
     Route: 048
     Dates: start: 20101101
  10. ORAMORPH SR [Concomitant]
     Route: 048
  11. GLYCERIN [Concomitant]
     Indication: CONSTIPATION
     Dosage: 1-2 SUPPOSITORIES
     Route: 054
     Dates: start: 20101108
  12. LENALIDOMIDE [Suspect]
     Indication: MULTIPLE MYELOMA
     Dosage: 25 MILLIGRAM
     Route: 048
     Dates: start: 20101101, end: 20101108
  13. CALCICHEW D3 FORTE [Concomitant]
     Dosage: 2 TABLET
     Route: 048
     Dates: start: 20100208, end: 20101101
  14. IV FLUIDS [Concomitant]
     Route: 051
     Dates: start: 20101101
  15. ACYCLOVIR [Concomitant]
     Indication: PROPHYLAXIS
     Dosage: 600 MILLIGRAM
     Route: 048
     Dates: start: 20101101
  16. DOCUSATE SODIUM [Concomitant]
     Route: 050
     Dates: start: 20101113
  17. DEXAMETHASONE [Suspect]
     Indication: MULTIPLE MYELOMA
     Dosage: 40 MILLIGRAM
     Route: 065
     Dates: start: 20101101, end: 20101114
  18. LORATADINE [Concomitant]
     Dosage: 10 MILLIGRAM
     Route: 048
  19. CROTAMITON [Concomitant]
     Indication: PRURITUS
     Dosage: 3 DOSAGE FORMS
     Route: 061
  20. SEPTRIN [Concomitant]
     Indication: INFECTION PROPHYLAXIS
     Dosage: 1920 MILLIGRAM
     Route: 048
     Dates: start: 20101101
  21. OXYGEN [Concomitant]
     Dosage: 4 LITERS
     Route: 065
     Dates: start: 20101101

REACTIONS (6)
  - BACK PAIN [None]
  - RENAL FAILURE ACUTE [None]
  - SEPSIS [None]
  - DYSPNOEA [None]
  - RESPIRATORY FAILURE [None]
  - HYPERCALCAEMIA [None]
